FAERS Safety Report 9237530 (Version 2)
Quarter: 2013Q3

REPORT INFORMATION
  Report Type: Spontaneous
  Country: US (occurrence: US)
  Receive Date: 20130417
  Receipt Date: 20130927
  Transmission Date: 20140515
  Serious: Yes (Other)
  Sender: FDA-Public Use
  Company Number: US-BAXTER-2013BAX014833

PATIENT
  Sex: Male

DRUGS (1)
  1. DOPAMINE HYDROCHLORIDE AND 5% DEXTROSE INJECTION, USP [Suspect]
     Indication: HYPOTENSION
     Dates: start: 20130331

REACTIONS (2)
  - Device infusion issue [Recovered/Resolved]
  - Blood pressure decreased [Recovered/Resolved]
